FAERS Safety Report 9636983 (Version 1)
Quarter: 2013Q4

REPORT INFORMATION
  Report Type: Report from Study
  Country: GR (occurrence: GR)
  Receive Date: 20131022
  Receipt Date: 20131022
  Transmission Date: 20140711
  Serious: Yes (Death)
  Sender: FDA-Public Use
  Company Number: GR-ROCHE-1291304

PATIENT
  Age: 77 Year
  Sex: Female

DRUGS (8)
  1. ERLOTINIB [Suspect]
     Indication: NON-SMALL CELL LUNG CANCER STAGE IV
     Route: 065
     Dates: start: 201101
  2. BEVACIZUMAB [Suspect]
     Indication: NON-SMALL CELL LUNG CANCER STAGE IV
     Route: 042
     Dates: start: 200901, end: 200905
  3. CARBOPLATIN [Suspect]
     Indication: NON-SMALL CELL LUNG CANCER STAGE IV
     Dosage: AUC6
     Route: 065
     Dates: start: 200901, end: 200905
  4. PEMETREXED [Suspect]
     Indication: NON-SMALL CELL LUNG CANCER STAGE IV
     Route: 065
     Dates: start: 200901, end: 200905
  5. DOCETAXEL [Suspect]
     Indication: NON-SMALL CELL LUNG CANCER STAGE IV
     Dosage: 70M/MG
     Route: 065
     Dates: start: 200912, end: 201006
  6. GEMCITABINE [Suspect]
     Indication: NON-SMALL CELL LUNG CANCER STAGE IV
     Route: 065
     Dates: start: 200912, end: 201006
  7. ZOLEDRONIC ACID [Suspect]
     Indication: NON-SMALL CELL LUNG CANCER STAGE IV
     Route: 065
     Dates: start: 200912, end: 201006
  8. ZOLEDRONIC ACID [Suspect]
     Route: 065
     Dates: start: 201101

REACTIONS (7)
  - Acute coronary syndrome [Fatal]
  - Disease recurrence [Unknown]
  - Disease progression [Unknown]
  - Gastrooesophageal reflux disease [Unknown]
  - Diarrhoea [Unknown]
  - Nail disorder [Unknown]
  - Dry skin [Unknown]
